FAERS Safety Report 18341709 (Version 2)
Quarter: 2020Q4

REPORT INFORMATION
  Report Type: Spontaneous
  Country: CA (occurrence: CA)
  Receive Date: 20201005
  Receipt Date: 20201031
  Transmission Date: 20210113
  Serious: Yes (Other)
  Sender: FDA-Public Use
  Company Number: CA-CELLTRION INC.-2018CA023476

PATIENT

DRUGS (19)
  1. INFLECTRA [Suspect]
     Active Substance: INFLIXIMAB-DYYB
     Dosage: 400 MG, (0,2,6 WEEKS THEN EVERY 8 WEEKS)
     Route: 042
     Dates: start: 20190129
  2. INFLECTRA [Suspect]
     Active Substance: INFLIXIMAB-DYYB
     Dosage: 400 MG, (0,2,6 WEEKS THEN EVERY 8 WEEKS)
     Route: 042
     Dates: start: 20191001
  3. NAPROXEN. [Concomitant]
     Active Substance: NAPROXEN
     Dosage: UNK
  4. INFLECTRA [Suspect]
     Active Substance: INFLIXIMAB-DYYB
     Indication: ANKYLOSING SPONDYLITIS
     Dosage: 400 MG, (EVERY 0,2,6 WEEKS, THEN EVERY 8 WEEKS)
     Route: 042
     Dates: start: 20180828
  5. INFLECTRA [Suspect]
     Active Substance: INFLIXIMAB-DYYB
     Dosage: 400 MG, (0,2,6 WEEKS THEN EVERY 8 WEEKS)
     Route: 042
     Dates: start: 20190326
  6. INFLECTRA [Suspect]
     Active Substance: INFLIXIMAB-DYYB
     Dosage: 400 MG, (0,2,6 WEEKS THEN EVERY 8 WEEKS)
     Route: 042
     Dates: start: 20191223
  7. MOBICOX [Concomitant]
     Active Substance: MELOXICAM
     Dosage: UNK
  8. INFLECTRA [Suspect]
     Active Substance: INFLIXIMAB-DYYB
     Dosage: 400 MG, (0,2,6 WEEKS THEN EVERY 8 WEEKS)
     Route: 042
     Dates: start: 20181204
  9. INFLECTRA [Suspect]
     Active Substance: INFLIXIMAB-DYYB
     Dosage: 400 MG, (0,2,6 WEEKS THEN EVERY 8 WEEKS)
     Route: 042
     Dates: start: 20200219
  10. INFLECTRA [Suspect]
     Active Substance: INFLIXIMAB-DYYB
     Dosage: 400 MG, (0,2,6 WEEKS THEN EVERY 8 WEEKS)
     Route: 042
     Dates: start: 20200806
  11. INFLECTRA [Suspect]
     Active Substance: INFLIXIMAB-DYYB
     Dosage: 400 MG, (0,2,6 WEEKS THEN EVERY 8 WEEKS)
     Route: 042
     Dates: start: 20190521
  12. INFLECTRA [Suspect]
     Active Substance: INFLIXIMAB-DYYB
     Dosage: UNK
     Route: 042
     Dates: start: 20181011
  13. INFLECTRA [Suspect]
     Active Substance: INFLIXIMAB-DYYB
     Dosage: 400 MG, (0,2,6 WEEKS THEN EVERY 8 WEEKS)
     Route: 042
     Dates: start: 20200414
  14. INDOCID [Concomitant]
     Active Substance: INDOMETHACIN
     Dosage: UNK
  15. VOLTAREN [Concomitant]
     Active Substance: DICLOFENAC SODIUM
     Dosage: UNK
  16. INFLECTRA [Suspect]
     Active Substance: INFLIXIMAB-DYYB
     Dosage: 400 MG, (EVERY 0,2,6 WEEKS, THEN EVERY 8 WEEKS)
     Route: 042
     Dates: start: 20180910
  17. INFLECTRA [Suspect]
     Active Substance: INFLIXIMAB-DYYB
     Dosage: 400 MG, (0,2,6 WEEKS THEN EVERY 8 WEEKS)
     Route: 042
     Dates: start: 20190809
  18. INFLECTRA [Suspect]
     Active Substance: INFLIXIMAB-DYYB
     Dosage: 400 MG, (0,2,6 WEEKS THEN EVERY 8 WEEKS)
     Route: 042
     Dates: start: 20200609
  19. INFLECTRA [Suspect]
     Active Substance: INFLIXIMAB-DYYB
     Dosage: 400 MG, (0,2,6 WEEKS THEN EVERY 8 WEEKS)
     Route: 042
     Dates: start: 20201023

REACTIONS (15)
  - Vaginal lesion [Not Recovered/Not Resolved]
  - Impaired healing [Not Recovered/Not Resolved]
  - Disease recurrence [Recovered/Resolved]
  - Abscess [Unknown]
  - Vulvovaginal pain [Not Recovered/Not Resolved]
  - Alopecia [Not Recovered/Not Resolved]
  - Disease recurrence [Unknown]
  - Vaginal ulceration [Not Recovered/Not Resolved]
  - Fatigue [Unknown]
  - Haemorrhoidal haemorrhage [Recovered/Resolved]
  - Bacterial vaginosis [Recovered/Resolved]
  - Nasopharyngitis [Not Recovered/Not Resolved]
  - Nasal congestion [Unknown]
  - Vaginal infection [Unknown]
  - Endometriosis [Unknown]

NARRATIVE: CASE EVENT DATE: 20180910
